FAERS Safety Report 5092758-6 (Version None)
Quarter: 2006Q3

REPORT INFORMATION
  Report Type: 
  Country: None (occurrence: None)
  Receive Date: 20060830
  Receipt Date: 20060818
  Transmission Date: 20061208
  Serious: Yes (Other)
  Sender: FDA-Public Use
  Company Number: CA-BRISTOL-MYERS SQUIBB COMPANY-13482997

PATIENT
  Age: 63 Year
  Sex: Female

DRUGS (2)
  1. GALLIUM (67 GA) CITRATE [Suspect]
     Dosage: DOSE:  3.7 MCI AND 2.4 MCI (LOT #G215611C, EXP 17-AUG-2006).
     Route: 042
     Dates: start: 20060814, end: 20060814
  2. SYNTHROID [Concomitant]

REACTIONS (1)
  - ANGIONEUROTIC OEDEMA [None]
